FAERS Safety Report 6301597-7 (Version None)
Quarter: 2009Q3

REPORT INFORMATION
  Report Type: 
  Country: None (occurrence: None)
  Receive Date: 20090805
  Receipt Date: 20090721
  Transmission Date: 20100115
  Serious: Yes (Other)
  Sender: FDA-Public Use
  Company Number: 8049493

PATIENT

DRUGS (1)
  1. METHYLPHENIDATE HCL [Suspect]

REACTIONS (5)
  - ABNORMAL BEHAVIOUR [None]
  - DRUG ABUSE [None]
  - EUPHORIC MOOD [None]
  - PALPITATIONS [None]
  - THINKING ABNORMAL [None]
